FAERS Safety Report 8998581 (Version 1)
Quarter: 2013Q1

REPORT INFORMATION
  Report Type: Spontaneous
  Country: US (occurrence: US)
  Receive Date: 20130103
  Receipt Date: 20130103
  Transmission Date: 20140127
  Serious: Yes (Hospitalization, Other)
  Sender: FDA-Public Use
  Company Number: US-TEVA-378499USA

PATIENT
  Age: 57 Year
  Sex: Female

DRUGS (2)
  1. GEMCITABINE [Suspect]
     Indication: BREAST CANCER
     Dosage: (2260 TOTAL DOSE) FIRST RECEIVED ON 27 OCT, AND 4, 17 AND 24 NOV
     Route: 065
  2. ZOLEDRONIC ACID [Concomitant]
     Route: 065
     Dates: start: 200811

REACTIONS (5)
  - Posterior reversible encephalopathy syndrome [Recovered/Resolved]
  - Arterial thrombosis [Unknown]
  - Renal vein thrombosis [Unknown]
  - Splenic vein thrombosis [Unknown]
  - Thrombocytopenia [Recovering/Resolving]
